FAERS Safety Report 12508194 (Version 1)
Quarter: 2016Q2

REPORT INFORMATION
  Report Type: Spontaneous
  Country: US (occurrence: US)
  Receive Date: 20160629
  Receipt Date: 20160629
  Transmission Date: 20160815
  Serious: No
  Sender: FDA-Public Use
  Company Number: US-AMNEAL PHARMACEUTICALS-2016AMN00175

PATIENT
  Age: 63 Year
  Sex: Female
  Weight: 99.77 kg

DRUGS (6)
  1. AMLODIPINE BESYLATE. [Concomitant]
     Active Substance: AMLODIPINE BESYLATE
     Indication: BLOOD PRESSURE MEASUREMENT
     Dosage: 1 TABLETS, 1X/DAY
  2. VESICARE [Concomitant]
     Active Substance: SOLIFENACIN SUCCINATE
     Dosage: 1 TABLETS, 1X/DAY
     Dates: start: 2012
  3. VENLAFAXINE HYDROCHLORIDE. [Suspect]
     Active Substance: VENLAFAXINE HYDROCHLORIDE
     Indication: ANXIETY
     Dosage: 3 CAPSULES, 1X/DAY
     Route: 048
     Dates: start: 201502, end: 201505
  4. GABAPENTIN. [Concomitant]
     Active Substance: GABAPENTIN
     Indication: NEUROPATHY PERIPHERAL
     Dosage: 3 CAPSULES, 1X/DAY
     Dates: start: 2006
  5. FUROSEMIDE. [Concomitant]
     Active Substance: FUROSEMIDE
     Dosage: 1 TABLETS, 1X/DAY
  6. LEVOTHYROXINE. [Concomitant]
     Active Substance: LEVOTHYROXINE
     Dosage: 1 TABLETS, 1X/DAY
     Dates: start: 2012

REACTIONS (2)
  - Abdominal pain upper [None]
  - Vomiting [None]

NARRATIVE: CASE EVENT DATE: 201502
